FAERS Safety Report 7088354-1 (Version None)
Quarter: 2010Q4

REPORT INFORMATION
  Report Type: 
  Country: None (occurrence: None)
  Receive Date: 20101108
  Receipt Date: 20101027
  Transmission Date: 20110411
  Serious: Yes (Other)
  Sender: FDA-Public Use
  Company Number: US-ELI_LILLY_AND_COMPANY-US201011000504

PATIENT
  Sex: Male

DRUGS (4)
  1. EFFIENT [Suspect]
     Dosage: 60 MG, LOADING DOSE
     Route: 065
  2. EFFIENT [Suspect]
     Dosage: 10 MG, UNKNOWN
     Route: 065
  3. HEPARIN [Concomitant]
     Dosage: UNK, UNKNOWN
     Route: 065
  4. ANGIOMAX [Concomitant]
     Dosage: UNK, UNKNOWN
     Route: 065

REACTIONS (2)
  - DEVICE FAILURE [None]
  - VESSEL PUNCTURE SITE HAEMATOMA [None]
